FAERS Safety Report 7135688-8 (Version None)
Quarter: 2010Q4

REPORT INFORMATION
  Report Type: 
  Country: None (occurrence: None)
  Receive Date: 20101203
  Receipt Date: 20101120
  Transmission Date: 20110411
  Serious: Yes (Other)
  Sender: FDA-Public Use
  Company Number: FR-ELI_LILLY_AND_COMPANY-FR201011005843

PATIENT
  Age: 68 Year
  Sex: Female
  Weight: 69 kg

DRUGS (3)
  1. EFFIENT [Suspect]
     Indication: ANGIOPLASTY
     Dosage: 10 MG, UNKNOWN
     Route: 065
     Dates: start: 20101009
  2. KARDEGIC [Concomitant]
     Indication: ANGIOPLASTY
     Dosage: UNK, UNKNOWN
     Route: 065
  3. CARDENSIEL [Concomitant]
     Indication: ANGIOPLASTY
     Dosage: UNK, UNKNOWN
     Route: 065

REACTIONS (8)
  - ABDOMINAL PAIN UPPER [None]
  - CORONARY ARTERIAL STENT INSERTION [None]
  - DYSURIA [None]
  - EPISTAXIS [None]
  - FATIGUE [None]
  - HAEMORRHAGE URINARY TRACT [None]
  - MALAISE [None]
  - VAGINAL HAEMORRHAGE [None]
